FAERS Safety Report 23601661 (Version 1)
Quarter: 2024Q1

REPORT INFORMATION
  Report Type: Spontaneous
  Country: CN (occurrence: CN)
  Receive Date: 20240306
  Receipt Date: 20240306
  Transmission Date: 20240410
  Serious: Yes (Disabling, Other)
  Sender: FDA-Public Use
  Company Number: CN-HUTCHMED LIMITED-HMP2024CN00414

PATIENT
  Age: 68 Year
  Sex: Male
  Weight: 74 kg

DRUGS (1)
  1. FRUQUINTINIB [Suspect]
     Active Substance: FRUQUINTINIB
     Indication: Rectal adenocarcinoma
     Dosage: 5 MILLIGRAM, QD
     Route: 048
     Dates: start: 20231227, end: 20240114

REACTIONS (1)
  - Blood creatinine increased [Recovering/Resolving]

NARRATIVE: CASE EVENT DATE: 20240102
